FAERS Safety Report 13390453 (Version 1)
Quarter: 2017Q1

REPORT INFORMATION
  Report Type: Spontaneous
  Country: US (occurrence: US)
  Receive Date: 20170331
  Receipt Date: 20170331
  Transmission Date: 20170429
  Serious: No
  Sender: FDA-Public Use
  Company Number: US-PFIZER INC-2017137724

PATIENT
  Age: 54 Year
  Sex: Female

DRUGS (1)
  1. IBRANCE [Suspect]
     Active Substance: PALBOCICLIB
     Dosage: 125 MG, CYCLIC (1 CAP EVERY DAY FOR 21 DAYS THEN 7 DAYS OFF)
     Route: 048
     Dates: start: 20161101

REACTIONS (4)
  - Dry skin [Unknown]
  - Epistaxis [Unknown]
  - Alopecia [Unknown]
  - Rhinalgia [Unknown]
